FAERS Safety Report 7774868-5 (Version None)
Quarter: 2011Q3

REPORT INFORMATION
  Report Type: 
  Country: None (occurrence: None)
  Receive Date: 20110923
  Receipt Date: 20110919
  Transmission Date: 20111222
  Serious: Yes (Other)
  Sender: FDA-Public Use
  Company Number: BR-ABBOTT-11P-020-0856140-00

PATIENT
  Age: 9 Year
  Sex: Male

DRUGS (3)
  1. CYCLOSPORINE [Suspect]
     Indication: IMMUNOSUPPRESSANT DRUG THERAPY
  2. TACROLIMUS [Suspect]
     Indication: CONVULSION
  3. PHENYTOIN [Concomitant]
     Indication: CONVULSION

REACTIONS (1)
  - LEUKOENCEPHALOPATHY [None]
